FAERS Safety Report 8988461 (Version 1)
Quarter: 2012Q4

REPORT INFORMATION
  Report Type: Spontaneous
  Country: US (occurrence: None)
  Receive Date: 20121224
  Receipt Date: 20121224
  Transmission Date: 20130627
  Serious: Yes (Life-Threatening, Hospitalization)
  Sender: FDA-Public Use
  Company Number: None

PATIENT
  Age: 60 Year
  Sex: Female
  Weight: 88 kg

DRUGS (1)
  1. RIVAROXABAN [Suspect]
     Indication: PULMONARY EMBOLUS
     Dosage: 15 mg BID po
     Route: 048
     Dates: start: 20121212, end: 20121214

REACTIONS (4)
  - Haemoglobin decreased [None]
  - Contusion [None]
  - Haematoma [None]
  - Soft tissue haemorrhage [None]
